FAERS Safety Report 4539177-6 (Version None)
Quarter: 2004Q4

REPORT INFORMATION
  Report Type: 
  Country: None (occurrence: None)
  Receive Date: 20041227
  Receipt Date: 20041227
  Transmission Date: 20050328
  Serious: Yes (Other)
  Sender: FDA-Public Use
  Company Number: None

PATIENT
  Age: 64 Year
  Sex: Female
  Weight: 65.3 kg

DRUGS (1)
  1. PROLASTIN [Suspect]

REACTIONS (3)
  - BRONCHOSPASM [None]
  - FLUSHING [None]
  - WHEEZING [None]
